FAERS Safety Report 23621117 (Version 1)
Quarter: 2024Q1

REPORT INFORMATION
  Report Type: Spontaneous
  Country: DE (occurrence: DE)
  Receive Date: 20240312
  Receipt Date: 20240312
  Transmission Date: 20240410
  Serious: Yes (Other)
  Sender: FDA-Public Use
  Company Number: None

PATIENT
  Age: 11 Year
  Sex: Male

DRUGS (1)
  1. IBUPROFEN [Suspect]
     Active Substance: IBUPROFEN
     Indication: Product used for unknown indication
     Dosage: ABZ 40 MG/ML SYRUP
     Route: 065
     Dates: start: 20240127

REACTIONS (2)
  - Hallucination, visual [Unknown]
  - Anxiety [Unknown]

NARRATIVE: CASE EVENT DATE: 20240128
